FAERS Safety Report 20060552 (Version 1)
Quarter: 2021Q4

REPORT INFORMATION
  Report Type: Spontaneous
  Country: US (occurrence: US)
  Receive Date: 20211112
  Receipt Date: 20211112
  Transmission Date: 20220303
  Serious: No
  Sender: FDA-Public Use
  Company Number: US-SA-SAC20211109001372

PATIENT
  Sex: Male

DRUGS (1)
  1. DUPIXENT [Suspect]
     Active Substance: DUPILUMAB
     Indication: Dermatitis atopic
     Dosage: 300MG/2ML, 300 MG, QOW
     Route: 058
     Dates: start: 20210726

REACTIONS (5)
  - Lacrimation increased [Unknown]
  - Eye discharge [Unknown]
  - Erythema of eyelid [Unknown]
  - Eyelid margin crusting [Unknown]
  - Eye pruritus [Unknown]
